FAERS Safety Report 16839699 (Version 1)
Quarter: 2019Q3

REPORT INFORMATION
  Report Type: Spontaneous
  Country: US (occurrence: US)
  Receive Date: 20190923
  Receipt Date: 20190923
  Transmission Date: 20191005
  Serious: Yes (Hospitalization)
  Sender: FDA-Public Use
  Company Number: US-JNJFOC-20190926324

PATIENT
  Age: 57 Year
  Sex: Female

DRUGS (2)
  1. INVOKANA [Suspect]
     Active Substance: CANAGLIFLOZIN
     Indication: PRODUCT USED FOR UNKNOWN INDICATION
     Route: 048
  2. INVOKANA [Suspect]
     Active Substance: CANAGLIFLOZIN
     Route: 048

REACTIONS (4)
  - Foot deformity [Recovering/Resolving]
  - Toe amputation [Unknown]
  - Osteomyelitis [Recovering/Resolving]
  - Diabetic foot [Recovering/Resolving]

NARRATIVE: CASE EVENT DATE: 20151009
